FAERS Safety Report 9357604 (Version 2)
Quarter: 2013Q3

REPORT INFORMATION
  Report Type: Spontaneous
  Country: US (occurrence: US)
  Receive Date: 20130620
  Receipt Date: 20130918
  Transmission Date: 20140515
  Serious: Yes (Hospitalization)
  Sender: FDA-Public Use
  Company Number: US-BAYER-2013-073756

PATIENT
  Age: 38 Year
  Sex: Female

DRUGS (18)
  1. YAZ [Suspect]
     Indication: ACNE
  2. YASMIN [Suspect]
     Indication: ACNE
  3. OCELLA [Suspect]
     Indication: ACNE
  4. PROVIGIL [Concomitant]
     Dosage: 100 MG, QD
     Route: 048
     Dates: start: 20110913
  5. CARMOL [UREA] [Concomitant]
     Dosage: UNK
     Route: 061
     Dates: start: 20110913
  6. ATIVAN [Concomitant]
     Dosage: 1MG TWICE DAILY
     Route: 048
     Dates: start: 20110913
  7. BACLOFEN [Concomitant]
     Dosage: 10 MG, TID
     Route: 048
     Dates: start: 20110913
  8. TOPAMAX [Concomitant]
     Dosage: UNK
     Route: 048
     Dates: start: 20110913
  9. LEXAPRO [Concomitant]
     Dosage: 10 MG, UNK
     Route: 048
     Dates: start: 20110913
  10. SYNTHROID [Concomitant]
     Dosage: 200 ?G, UNK
     Route: 048
     Dates: start: 20110913
  11. COPAXONE [Concomitant]
     Dosage: UNK
     Route: 058
     Dates: start: 20110913
  12. GABAPENTIN [Concomitant]
     Dosage: UNK
     Dates: start: 20110913
  13. AMITRIPTYLINE [Concomitant]
     Dosage: UNK
     Route: 048
     Dates: start: 20110913
  14. ZANAFLEX [Concomitant]
     Dosage: 8 MG, UNK
     Route: 048
     Dates: start: 20110913
  15. AMBIEN [Concomitant]
     Dosage: UNK
     Dates: start: 20110913
  16. IMITREX [Concomitant]
     Dosage: UNK
     Dates: start: 20110913
  17. LIDODERM [Concomitant]
     Dosage: UNK
     Route: 062
     Dates: start: 20110913
  18. MAGNESIUM [Concomitant]
     Dosage: 500 MG, QD
     Route: 048
     Dates: start: 20110913

REACTIONS (4)
  - Cerebrovascular accident [None]
  - Injury [None]
  - Pain [None]
  - Pain [None]
